FAERS Safety Report 16002851 (Version 1)
Quarter: 2019Q1

REPORT INFORMATION
  Report Type: Spontaneous
  Country: US (occurrence: US)
  Receive Date: 20190225
  Receipt Date: 20190225
  Transmission Date: 20190418
  Serious: No
  Sender: FDA-Public Use
  Company Number: US-SA-2019SA049813

PATIENT

DRUGS (4)
  1. ENBREL [Suspect]
     Active Substance: ETANERCEPT
     Dosage: UNK
  2. METHOTREXATE. [Suspect]
     Active Substance: METHOTREXATE
     Route: 048
  3. ARAVA [Suspect]
     Active Substance: LEFLUNOMIDE
  4. HUMIRA [Suspect]
     Active Substance: ADALIMUMAB

REACTIONS (3)
  - Vision blurred [Unknown]
  - Tobacco user [Unknown]
  - Therapy non-responder [Unknown]
